FAERS Safety Report 4623171-0 (Version None)
Quarter: 2005Q1

REPORT INFORMATION
  Report Type: 
  Country: None (occurrence: None)
  Receive Date: 20050329
  Receipt Date: 20050317
  Transmission Date: 20050727
  Serious: No
  Sender: FDA-Public Use
  Company Number: 2005UW04350

PATIENT

DRUGS (1)
  1. TOPROL-XL [Suspect]

REACTIONS (1)
  - ANAPHYLACTIC REACTION [None]
